FAERS Safety Report 4383801-8 (Version None)
Quarter: 2004Q2

REPORT INFORMATION
  Report Type: 
  Country: None (occurrence: None)
  Receive Date: 20040608
  Receipt Date: 20030915
  Transmission Date: 20050107
  Serious: Yes (Hospitalization, Other)
  Sender: FDA-Public Use
  Company Number: 200313346BCC

PATIENT
  Age: 80 Year
  Sex: Male
  Weight: 92.9874 kg

DRUGS (4)
  1. ALEVE (CAPLET) [Suspect]
     Indication: ARTHRITIS
     Dosage: 440 MG, QD, ORAL
     Route: 048
  2. HIGH BLOOD PRESSURE MEDICATION [Concomitant]
  3. CELEBREX [Concomitant]
  4. ASPIRIN [Concomitant]

REACTIONS (1)
  - ULCER HAEMORRHAGE [None]
